FAERS Safety Report 14777539 (Version 1)
Quarter: 2018Q2

REPORT INFORMATION
  Report Type: Spontaneous
  Country: US (occurrence: US)
  Receive Date: 20180419
  Receipt Date: 20180419
  Transmission Date: 20180711
  Serious: Yes (Hospitalization)
  Sender: FDA-Public Use
  Company Number: US-PFIZER INC-2018081675

PATIENT
  Age: 75 Year
  Sex: Female
  Weight: 65.31 kg

DRUGS (2)
  1. IBRANCE [Suspect]
     Active Substance: PALBOCICLIB
     Indication: BREAST CANCER FEMALE
     Dosage: 125 MG, CYCLIC (ONCE PER DAY FOR 21 DAYS ON 7 DAYS ON 7 DAYS OFF)
     Dates: start: 20180312
  2. LOVENOX [Concomitant]
     Active Substance: ENOXAPARIN SODIUM
     Indication: HORMONE THERAPY
     Dosage: UNK, 2 SHOTS IN REAR EVERY TWO WEEKS
     Dates: start: 20180312

REACTIONS (2)
  - Myalgia [Recovering/Resolving]
  - White blood cell count decreased [Recovered/Resolved]

NARRATIVE: CASE EVENT DATE: 20180405
